FAERS Safety Report 20705588 (Version 1)
Quarter: 2022Q2

REPORT INFORMATION
  Report Type: Spontaneous
  Country: AS (occurrence: None)
  Receive Date: 20220412
  Receipt Date: 20220412
  Transmission Date: 20220721
  Serious: Yes (Death)
  Sender: FDA-Public Use
  Company Number: None

PATIENT
  Age: 75 Year
  Sex: Female
  Weight: 32 kg

DRUGS (1)
  1. SOTROVIMAB [Suspect]
     Active Substance: SOTROVIMAB
     Indication: COVID-19
     Dosage: FREQUENCY : DAILY;?
     Route: 042
     Dates: start: 20220329, end: 20220329

REACTIONS (2)
  - Dialysis [None]
  - Cardio-respiratory arrest [None]

NARRATIVE: CASE EVENT DATE: 20220404
